FAERS Safety Report 25813709 (Version 1)
Quarter: 2025Q3

REPORT INFORMATION
  Report Type: Spontaneous
  Country: US (occurrence: US)
  Receive Date: 20250917
  Receipt Date: 20250917
  Transmission Date: 20251020
  Serious: No
  Sender: ABBVIE
  Company Number: US-ABBVIE-6462163

PATIENT
  Age: 29 Year
  Sex: Female

DRUGS (2)
  1. MAVYRET [Suspect]
     Active Substance: GLECAPREVIR\PIBRENTASVIR
     Indication: Hepatitis C
     Route: 048
     Dates: start: 20250108
  2. GABAPENTIN [Concomitant]
     Active Substance: GABAPENTIN
     Indication: Anxiety

REACTIONS (4)
  - Swelling [Unknown]
  - Fluid retention [Unknown]
  - Oedema [Unknown]
  - Arthralgia [Unknown]

NARRATIVE: CASE EVENT DATE: 20250101
